FAERS Safety Report 23965370 (Version 2)
Quarter: 2024Q4

REPORT INFORMATION
  Report Type: Report from Study
  Country: BR (occurrence: BR)
  Receive Date: 20240612
  Receipt Date: 20241231
  Transmission Date: 20250114
  Serious: Yes (Other)
  Sender: BIOGEN
  Company Number: BR-BIOGEN-2024BI01268567

PATIENT
  Sex: Female
  Weight: 75 kg

DRUGS (2)
  1. TYSABRI [Suspect]
     Active Substance: NATALIZUMAB
     Indication: Multiple sclerosis
     Route: 050
     Dates: start: 20210408
  2. TYSABRI [Suspect]
     Active Substance: NATALIZUMAB
     Route: 050

REACTIONS (3)
  - Cervix dystocia [Recovered/Resolved]
  - Maternal exposure during pregnancy [Recovered/Resolved]
  - Anaemia of pregnancy [Recovered/Resolved]

NARRATIVE: CASE EVENT DATE: 20230101
